FAERS Safety Report 12277204 (Version 1)
Quarter: 2016Q2

REPORT INFORMATION
  Report Type: Report from Study
  Country: US (occurrence: US)
  Receive Date: 20160418
  Receipt Date: 20160418
  Transmission Date: 20160815
  Serious: Yes (Hospitalization)
  Sender: FDA-Public Use
  Company Number: US-BIOGEN-2015BI041787

PATIENT
  Age: 71 Year
  Sex: Male
  Weight: 101.5 kg

DRUGS (6)
  1. LISINOPRIL. [Concomitant]
     Active Substance: LISINOPRIL
     Indication: HYPERTENSION
     Route: 048
     Dates: start: 2006
  2. FISH OIL [Concomitant]
     Active Substance: FISH OIL
     Indication: SUPPLEMENTATION THERAPY
     Dosage: DAILY DOSE: 1 TAB
     Route: 048
     Dates: start: 2010
  3. CARDIZEM-ER [Concomitant]
     Indication: HYPERTENSION
     Route: 048
     Dates: start: 20130615
  4. ASPIRIN. [Concomitant]
     Active Substance: ASPIRIN
     Indication: CARDIOVASCULAR EVENT PROPHYLAXIS
     Route: 048
     Dates: start: 2006
  5. BIIB037 [Suspect]
     Active Substance: ADUCANUMAB
     Indication: DEMENTIA ALZHEIMER^S TYPE
     Route: 042
     Dates: start: 20140221
  6. SUPER B-COMPLEX [Concomitant]
     Indication: SUPPLEMENTATION THERAPY
     Dosage: DAILY DOSE: 1 TABLET
     Route: 048
     Dates: start: 2005

REACTIONS (1)
  - Cerebrovascular accident [Recovered/Resolved]

NARRATIVE: CASE EVENT DATE: 20150217
